FAERS Safety Report 7059504-8 (Version None)
Quarter: 2010Q4

REPORT INFORMATION
  Report Type: 
  Country: None (occurrence: None)
  Receive Date: 20101025
  Receipt Date: 20101021
  Transmission Date: 20110411
  Serious: Yes (Other)
  Sender: FDA-Public Use
  Company Number: US-WYE-H18274910

PATIENT
  Sex: Female

DRUGS (3)
  1. EFFEXOR XR [Suspect]
     Dosage: UNKNOWN
  2. EFFEXOR XR [Suspect]
     Dosage: ^TRIED TO GO WITHOUT^
  3. EFFEXOR XR [Suspect]

REACTIONS (4)
  - DRUG WITHDRAWAL SYNDROME [None]
  - MALAISE [None]
  - SUICIDAL IDEATION [None]
  - UNEVALUABLE EVENT [None]
